FAERS Safety Report 7455378-1 (Version None)
Quarter: 2011Q2

REPORT INFORMATION
  Report Type: 
  Country: None (occurrence: None)
  Receive Date: 20110503
  Receipt Date: 20110420
  Transmission Date: 20111010
  Serious: Yes (Hospitalization, Other)
  Sender: FDA-Public Use
  Company Number: US-TYCO HEALTHCARE/MALLINCKRODT-T201100829

PATIENT
  Age: 85 Year
  Sex: Male

DRUGS (7)
  1. OXYCODONE [Suspect]
  2. COLACE [Concomitant]
     Dosage: 300 MG, QD
  3. PREVACID [Suspect]
     Dosage: 30 MG, QD
  4. FLOMAX [Concomitant]
     Dosage: 0.4 MG, QD
  5. FENTANYL-100 [Suspect]
     Indication: MUSCULOSKELETAL CHEST PAIN
     Dosage: UNK
  6. SENNA                              /00142201/ [Concomitant]
     Dosage: TWO TABLETS THREE TIMES DAILY
  7. RANITIDINE [Concomitant]
     Dosage: 300 MG, HS

REACTIONS (7)
  - CLOSTRIDIUM DIFFICILE COLITIS [None]
  - DELIRIUM [None]
  - URINARY TRACT INFECTION [None]
  - LABORATORY TEST ABNORMAL [None]
  - SUPRAVENTRICULAR TACHYCARDIA [None]
  - DEHYDRATION [None]
  - PNEUMONIA [None]
